FAERS Safety Report 14950705 (Version 1)
Quarter: 2018Q2

REPORT INFORMATION
  Report Type: Spontaneous
  Country: US (occurrence: US)
  Receive Date: 20180508
  Receipt Date: 20180508
  Transmission Date: 20180711
  Serious: No
  Sender: FDA-Public Use
  Company Number: None

PATIENT
  Age: 34 Year
  Sex: Male
  Weight: 74.84 kg

DRUGS (1)
  1. PARAGARD T 380A [Suspect]
     Active Substance: COPPER
     Dates: start: 20170321, end: 20180508

REACTIONS (7)
  - Dyspareunia [None]
  - Vaginal haemorrhage [None]
  - Muscle spasms [None]
  - Nausea [None]
  - Menorrhagia [None]
  - Headache [None]
  - Menstruation irregular [None]

NARRATIVE: CASE EVENT DATE: 20170321
